FAERS Safety Report 8194410 (Version 2)
Quarter: 2012Q4

REPORT INFORMATION
  Report Type: 
  Country: US (occurrence: US)
  Receive Date: 20111023
  Receipt Date: 20121121
  Transmission Date: 20130627
  Serious: Yes (Hospitalization, Other)
  Sender: FDA-Public Use
  Company Number: US-ELI_LILLY_AND_COMPANY-US201110004923

PATIENT
  Age: 49 Year
  Sex: Female

DRUGS (18)
  1. BYETTA [Suspect]
     Dosage: UNK UNK, unknown
     Route: 058
     Dates: start: 20070119, end: 20080604
  2. GLUCOPHAGE [Concomitant]
  3. PRILOSEC [Concomitant]
  4. NOVOLOG [Concomitant]
  5. SPIRIVA [Concomitant]
  6. ASPIRIN [Concomitant]
  7. LASIX                              /00032601/ [Concomitant]
  8. MAGNESIUM OXIDE [Concomitant]
  9. CLONAZEPAM [Concomitant]
  10. ZOCOR [Concomitant]
  11. NORFLEX                            /00018303/ [Concomitant]
  12. VICODIN [Concomitant]
  13. ZESTRIL [Concomitant]
  14. CYMBALTA [Concomitant]
  15. QUESTRAN [Concomitant]
  16. IMODIUM [Concomitant]
     Dosage: UNK, prn
  17. NITROGLYCERINE [Concomitant]
     Dosage: UNK, prn
  18. LANACANE [Concomitant]
     Dosage: UNK, prn
     Route: 062

REACTIONS (3)
  - Pancreatitis chronic [Unknown]
  - Pancreatitis [Unknown]
  - Off label use [Recovered/Resolved]
